FAERS Safety Report 12743083 (Version 1)
Quarter: 2016Q3

REPORT INFORMATION
  Report Type: Spontaneous
  Country: US (occurrence: US)
  Receive Date: 20160914
  Receipt Date: 20160914
  Transmission Date: 20161109
  Serious: No
  Sender: FDA-Public Use
  Company Number: US-SIGMA-TAU US-2016STPI000406

PATIENT
  Age: 55 Year

DRUGS (3)
  1. VINCRISTINE [Suspect]
     Active Substance: VINCRISTINE
     Indication: GLIOMA
     Dosage: 2 MG, Q3W
     Route: 042
     Dates: start: 20150927, end: 20160523
  2. MATULANE [Suspect]
     Active Substance: PROCARBAZINE HYDROCHLORIDE
     Indication: GLIOMA
     Dosage: 150 MG, OTHER
     Route: 048
     Dates: start: 20150914
  3. CCNU [Suspect]
     Active Substance: LOMUSTINE
     Indication: GLIOMA
     Dosage: 160 MG, OTHER
     Route: 048
     Dates: start: 20150914, end: 20160530

REACTIONS (2)
  - Fatigue [Unknown]
  - Nausea [Unknown]

NARRATIVE: CASE EVENT DATE: 20160601
